FAERS Safety Report 24873623 (Version 1)
Quarter: 2025Q1

REPORT INFORMATION
  Report Type: Spontaneous
  Country: FR (occurrence: FR)
  Receive Date: 20250122
  Receipt Date: 20250122
  Transmission Date: 20250408
  Serious: Yes (Life-Threatening, Hospitalization, Other)
  Sender: SANOFI AVENTIS
  Company Number: FR-AFSSAPS-MP2024001911

PATIENT
  Age: 25 Year
  Sex: Male
  Weight: 59 kg

DRUGS (18)
  1. CLONAZEPAM [Suspect]
     Active Substance: CLONAZEPAM
  2. BLEOMYCIN HYDROCHLORIDE [Suspect]
     Active Substance: BLEOMYCIN HYDROCHLORIDE
     Indication: Hodgkin^s disease
     Dosage: 17.5 MG, QD
     Route: 042
     Dates: start: 20241202, end: 20241202
  3. LENOGRASTIM [Suspect]
     Active Substance: LENOGRASTIM
     Dates: start: 20241203
  4. LENOGRASTIM [Suspect]
     Active Substance: LENOGRASTIM
     Dates: start: 20241209
  5. LEVETIRACETAM [Suspect]
     Active Substance: LEVETIRACETAM
  6. ENOXAPARIN SODIUM [Suspect]
     Active Substance: ENOXAPARIN SODIUM
     Dates: start: 20241107
  7. DACARBAZINE [Suspect]
     Active Substance: DACARBAZINE
     Indication: Hodgkin^s disease
     Dosage: 440 MG, QD
     Route: 042
     Dates: start: 20241126, end: 20241126
  8. DACARBAZINE [Suspect]
     Active Substance: DACARBAZINE
     Dosage: 440 MG, QD
     Route: 042
     Dates: start: 20241127, end: 20241127
  9. CYCLOPHOSPHAMIDE [Suspect]
     Active Substance: CYCLOPHOSPHAMIDE
     Indication: Hodgkin^s disease
     Dosage: 2180 MG, QD
     Route: 042
     Dates: start: 20241125, end: 20241125
  10. ETOPOSIDE [Suspect]
     Active Substance: ETOPOSIDE
     Indication: Hodgkin^s disease
     Dosage: 350 MG, QD
     Route: 042
     Dates: start: 20241125, end: 20241125
  11. ETOPOSIDE [Suspect]
     Active Substance: ETOPOSIDE
     Dosage: 350 MG, QD
     Route: 042
     Dates: start: 20241126, end: 20241126
  12. ETOPOSIDE [Suspect]
     Active Substance: ETOPOSIDE
     Dosage: 350 MG, QD
     Route: 042
     Dates: start: 20241127, end: 20241127
  13. VINCRISTINE SULFATE [Suspect]
     Active Substance: VINCRISTINE SULFATE
     Indication: Hodgkin^s disease
     Dosage: 1.85 MG, QD
     Route: 042
     Dates: start: 20241202, end: 20241202
  14. DACTINOMYCIN [Suspect]
     Active Substance: DACTINOMYCIN
     Dates: start: 20241125
  15. CANNABIS SATIVA SUBSP. INDICA TOP [Suspect]
     Active Substance: CANNABIS SATIVA SUBSP. INDICA TOP
     Dates: start: 20241213
  16. DOXORUBICIN HYDROCHLORIDE [Suspect]
     Active Substance: DOXORUBICIN HYDROCHLORIDE
     Indication: Hodgkin^s disease
     Dosage: 60 MG, QD
     Route: 042
     Dates: start: 20241125, end: 20241125
  17. PREDNISOLONE SODIUM METAZOATE [Suspect]
     Active Substance: PREDNISOLONE SODIUM METAZOATE
     Dosage: 120 MG, QD
     Dates: start: 20241107
  18. PREDNISOLONE SODIUM METAZOATE [Suspect]
     Active Substance: PREDNISOLONE SODIUM METAZOATE
     Dosage: 40 MG, QD

REACTIONS (8)
  - Encephalitis [Recovering/Resolving]
  - Seizure [Unknown]
  - Pneumonitis [Unknown]
  - Agitation [Unknown]
  - Hepatomegaly [Unknown]
  - Hepatic steatosis [Unknown]
  - Encephalitis herpes [Unknown]
  - Tuberculosis [Unknown]

NARRATIVE: CASE EVENT DATE: 20241201
